FAERS Safety Report 9791995 (Version 1)
Quarter: 2014Q1

REPORT INFORMATION
  Report Type: Spontaneous
  Country: AR (occurrence: AR)
  Receive Date: 20140102
  Receipt Date: 20140102
  Transmission Date: 20141002
  Serious: Yes (Congenital Anomaly)
  Sender: FDA-Public Use
  Company Number: AR-TEVA-453869ISR

PATIENT
  Sex: Female
  Weight: .9 kg

DRUGS (6)
  1. METHOTREXATE [Suspect]
     Indication: RHEUMATOID ARTHRITIS
     Route: 064
  2. FLUCONAZOLE [Concomitant]
     Route: 064
  3. ROFECOXIB [Concomitant]
     Dosage: 25 MILLIGRAM DAILY;
     Route: 064
  4. MEPREDNISONE [Concomitant]
     Dosage: 8 MILLIGRAM DAILY;
     Route: 064
  5. RANITIDINE [Concomitant]
     Dosage: 300 MILLIGRAM DAILY;
     Route: 064
  6. ISONIAZID [Concomitant]
     Dosage: 300 MILLIGRAM DAILY;
     Route: 064

REACTIONS (12)
  - Microcephaly [Unknown]
  - Scaphocephaly [Unknown]
  - Delayed fontanelle closure [Unknown]
  - Congenital nose malformation [Unknown]
  - Exophthalmos congenital [Unknown]
  - Low set ears [Unknown]
  - Adactyly [Unknown]
  - Talipes [Unknown]
  - Congenital skin dimples [Unknown]
  - Foetal growth restriction [Not Recovered/Not Resolved]
  - High arched palate [Unknown]
  - Congenital musculoskeletal anomaly [Unknown]
